FAERS Safety Report 7945041-2 (Version None)
Quarter: 2011Q4

REPORT INFORMATION
  Report Type: 
  Country: None (occurrence: None)
  Receive Date: 20111122
  Receipt Date: 20111107
  Transmission Date: 20120403
  Serious: Yes (Other)
  Sender: FDA-Public Use
  Company Number: CN-1188976

PATIENT
  Age: 45 Year
  Sex: Female

DRUGS (1)
  1. TOBRADEX [Suspect]
     Indication: POSTOPERATIVE CARE
     Dosage: (OPHTHALMIC)
     Route: 047

REACTIONS (2)
  - LIPOGRANULOMA [None]
  - OFF LABEL USE [None]
